FAERS Safety Report 15230431 (Version 2)
Quarter: 2018Q3

REPORT INFORMATION
  Report Type: Spontaneous
  Country: US (occurrence: US)
  Receive Date: 20180802
  Receipt Date: 20180831
  Transmission Date: 20181010
  Serious: No
  Sender: FDA-Public Use
  Company Number: US-ASTRAZENECA-2018SE91046

PATIENT
  Sex: Female
  Weight: 47.6 kg

DRUGS (1)
  1. TUDORZA PRESSAIR [Suspect]
     Active Substance: ACLIDINIUM BROMIDE
     Indication: CHRONIC OBSTRUCTIVE PULMONARY DISEASE
     Route: 055

REACTIONS (6)
  - Memory impairment [Unknown]
  - Off label use [Unknown]
  - Incorrect dose administered [Unknown]
  - Nervousness [Unknown]
  - Dyspnoea [Unknown]
  - Device issue [Unknown]
